FAERS Safety Report 10332202 (Version 1)
Quarter: 2014Q3

REPORT INFORMATION
  Report Type: Spontaneous
  Country: US (occurrence: None)
  Receive Date: 20140721
  Receipt Date: 20140721
  Transmission Date: 20150326
  Serious: Yes (Life-Threatening, Hospitalization, Disabling, Other)
  Sender: FDA-Public Use
  Company Number: None

PATIENT
  Age: 74 Year
  Sex: Female
  Weight: 69.4 kg

DRUGS (16)
  1. DULERA [Concomitant]
     Active Substance: FORMOTEROL FUMARATE DIHYDRATE\MOMETASONE FUROATE
  2. PROPOXYPHENE [Suspect]
     Active Substance: PROPOXYPHENE
     Indication: CHEST PAIN
     Dosage: 1 PILL EVERY 8 HOURS AS NEEDED BY MOUTH
     Route: 048
     Dates: start: 20060112, end: 20101119
  3. OMEPRAZOLE. [Concomitant]
     Active Substance: OMEPRAZOLE
  4. ULORIC [Concomitant]
     Active Substance: FEBUXOSTAT
  5. CLONAZEPAM. [Concomitant]
     Active Substance: CLONAZEPAM
  6. MELOXICAM. [Concomitant]
     Active Substance: MELOXICAM
  7. PHENYTOIN. [Concomitant]
     Active Substance: PHENYTOIN
  8. CLOPIDOGREL [Concomitant]
     Active Substance: CLOPIDOGREL BISULFATE
  9. CELEBREX [Concomitant]
     Active Substance: CELECOXIB
  10. CENTRUM SILVER [Concomitant]
     Active Substance: VITAMINS
  11. GLIPIZIDE. [Concomitant]
     Active Substance: GLIPIZIDE
  12. SERTRALINE [Concomitant]
     Active Substance: SERTRALINE HYDROCHLORIDE
  13. PRAVASTATIN [Concomitant]
     Active Substance: PRAVASTATIN\PRAVASTATIN SODIUM
  14. ATENOLOL. [Concomitant]
     Active Substance: ATENOLOL
  15. MONTELUKASTSOD [Concomitant]
  16. ISOSORBIDE [Concomitant]
     Active Substance: ISOSORBIDE

REACTIONS (1)
  - Chest pain [None]

NARRATIVE: CASE EVENT DATE: 20080310
